FAERS Safety Report 5033664-2 (Version None)
Quarter: 2006Q2

REPORT INFORMATION
  Report Type: 
  Country: None (occurrence: None)
  Receive Date: 20060623
  Receipt Date: 20060613
  Transmission Date: 20061013
  Serious: Yes (Congenital Anomaly)
  Sender: FDA-Public Use
  Company Number: US-GLAXOSMITHKLINE-A0610054A

PATIENT
  Weight: 3.3 kg

DRUGS (5)
  1. SALMETEROL [Suspect]
     Indication: MATERNAL CONDITION AFFECTING FOETUS
  2. ALBUTEROL [Suspect]
     Indication: MATERNAL CONDITION AFFECTING FOETUS
  3. SINGULAIR [Concomitant]
  4. CROMOLYN SODIUM [Concomitant]
  5. VITAMINS [Concomitant]

REACTIONS (4)
  - AMNIOTIC CAVITY DISORDER [None]
  - CONGENITAL HAND MALFORMATION [None]
  - DRUG EXPOSURE DURING PREGNANCY [None]
  - LIMB REDUCTION DEFECT [None]
